FAERS Safety Report 13492740 (Version 3)
Quarter: 2018Q3

REPORT INFORMATION
  Report Type: Spontaneous
  Country: JP (occurrence: JP)
  Receive Date: 20170427
  Receipt Date: 20180705
  Transmission Date: 20181010
  Serious: Yes (Life-Threatening)
  Sender: FDA-Public Use
  Company Number: JP-SEATTLE GENETICS-2017SGN01075

PATIENT
  Age: 47 Year
  Sex: Male
  Weight: 59.6 kg

DRUGS (2)
  1. ADCETRIS [Suspect]
     Active Substance: BRENTUXIMAB VEDOTIN
     Indication: HODGKIN^S DISEASE RECURRENT
     Dosage: 100 MG, Q21D
     Route: 041
     Dates: start: 20170404, end: 20170404
  2. ADCETRIS [Suspect]
     Active Substance: BRENTUXIMAB VEDOTIN
     Indication: HODGKIN^S DISEASE
     Dosage: 150 MG, Q21D
     Route: 041
     Dates: start: 20170316, end: 20170316

REACTIONS (4)
  - Hepatic function abnormal [Unknown]
  - Rash [Recovering/Resolving]
  - Laryngeal oedema [Recovered/Resolved]
  - Swelling face [Recovered/Resolved]

NARRATIVE: CASE EVENT DATE: 20170319
